FAERS Safety Report 5252003-5 (Version None)
Quarter: 2007Q1

REPORT INFORMATION
  Report Type: 
  Country: None (occurrence: None)
  Receive Date: 20070226
  Receipt Date: 20070214
  Transmission Date: 20070707
  Serious: Yes (Hospitalization)
  Sender: FDA-Public Use
  Company Number: 2007AL000648

PATIENT
  Age: 43 Year
  Sex: Female

DRUGS (14)
  1. ACYCLOVIR [Suspect]
     Dosage: 200 MG; TID; PO
     Route: 048
     Dates: start: 20061231, end: 20061231
  2. ADIZEM-XL [Concomitant]
  3. TRETINOIN [Concomitant]
  4. ALLOPURINOL [Concomitant]
  5. CANDESARTAN [Concomitant]
  6. CASPOFUNGIN [Concomitant]
  7. CEFTAZIDIME [Concomitant]
  8. CLOMIPRAMINE HCL [Concomitant]
  9. METRONIDAZOLE [Concomitant]
  10. TEICOPLANIN [Concomitant]
  11. METRONIDAZOLE [Concomitant]
  12. CIPROFLOXACIN [Concomitant]
  13. CIPROFLOXACIN [Concomitant]
  14. ACYCLOVIR [Concomitant]

REACTIONS (6)
  - GENERAL PHYSICAL HEALTH DETERIORATION [None]
  - HYPOPERFUSION [None]
  - HYPOVOLAEMIA [None]
  - NEPHRITIS INTERSTITIAL [None]
  - RENAL FAILURE ACUTE [None]
  - SEPSIS [None]
